FAERS Safety Report 8577476-1 (Version None)
Quarter: 2012Q3

REPORT INFORMATION
  Report Type: 
  Country: None (occurrence: None)
  Receive Date: 20120807
  Receipt Date: 20120802
  Transmission Date: 20120928
  Serious: No
  Sender: FDA-Public Use
  Company Number: US-ASTRAZENECA-2011SE26908

PATIENT
  Age: 71 Year
  Sex: Female

DRUGS (1)
  1. NEXIUM [Suspect]
     Route: 048

REACTIONS (8)
  - CATARACT [None]
  - MALAISE [None]
  - TOOTHACHE [None]
  - GASTROOESOPHAGEAL REFLUX DISEASE [None]
  - LOCAL SWELLING [None]
  - IRON DEFICIENCY ANAEMIA [None]
  - DIARRHOEA [None]
  - DRUG DOSE OMISSION [None]
